FAERS Safety Report 14448437 (Version 1)
Quarter: 2018Q1

REPORT INFORMATION
  Report Type: Spontaneous
  Country: US (occurrence: US)
  Receive Date: 20180126
  Receipt Date: 20180126
  Transmission Date: 20180509
  Serious: Yes (Hospitalization)
  Sender: FDA-Public Use
  Company Number: None

PATIENT
  Age: 24 Year
  Sex: Female
  Weight: 60.8 kg

DRUGS (5)
  1. MIDAZOLAM [Concomitant]
     Active Substance: MIDAZOLAM HYDROCHLORIDE
  2. HEPARIN [Concomitant]
     Active Substance: HEPARIN SODIUM
  3. FENTANYL CITRATE. [Concomitant]
     Active Substance: FENTANYL CITRATE
  4. OMNIPAQUE [Suspect]
     Active Substance: IOHEXOL
     Indication: ANGIOGRAM CEREBRAL
     Route: 040
     Dates: start: 20180123, end: 20180123
  5. OMNIPAQUE [Suspect]
     Active Substance: IOHEXOL
     Indication: ANGIOGRAM CEREBRAL
     Route: 040
     Dates: start: 20180123, end: 20180123

REACTIONS (9)
  - Heart rate increased [None]
  - Blood pressure increased [None]
  - Contrast media reaction [None]
  - Gaze palsy [None]
  - Neck pain [None]
  - Chills [None]
  - Lethargy [None]
  - Seizure [None]
  - Gait disturbance [None]

NARRATIVE: CASE EVENT DATE: 20180123
